FAERS Safety Report 20669008 (Version 1)
Quarter: 2022Q2

REPORT INFORMATION
  Report Type: Spontaneous
  Country: US (occurrence: US)
  Receive Date: 20220404
  Receipt Date: 20220404
  Transmission Date: 20220721
  Serious: Yes (Hospitalization, Other)
  Sender: FDA-Public Use
  Company Number: US-GLAXOSMITHKLINE-US2022056713

PATIENT
  Sex: Female

DRUGS (2)
  1. LAMICTAL [Suspect]
     Active Substance: LAMOTRIGINE
     Indication: Chronic inflammatory demyelinating polyradiculoneuropathy
     Dosage: UNK UNK, BID 225MG TWICE A DAY
     Dates: start: 2002
  2. LAMOTRIGINE [Suspect]
     Active Substance: LAMOTRIGINE
     Indication: Chronic inflammatory demyelinating polyradiculoneuropathy
     Dosage: UNK
     Dates: start: 2006

REACTIONS (7)
  - Chronic inflammatory demyelinating polyradiculoneuropathy [Unknown]
  - Rash erythematous [Unknown]
  - Cerebrovascular accident [Unknown]
  - Seizure [Unknown]
  - Stem cell transplant [Unknown]
  - Product use in unapproved indication [Unknown]
  - Product dispensing error [Unknown]

NARRATIVE: CASE EVENT DATE: 20020101
